FAERS Safety Report 19484515 (Version 1)
Quarter: 2021Q3

REPORT INFORMATION
  Report Type: Report from Study
  Country: US (occurrence: US)
  Receive Date: 20210702
  Receipt Date: 20210702
  Transmission Date: 20211014
  Serious: No
  Sender: FDA-Public Use
  Company Number: US-ACADIA PHARMACEUTICALS INC.-ACA-2021-PIM-002169

PATIENT
  Sex: Male

DRUGS (12)
  1. VITAMINS NOS [Concomitant]
     Active Substance: VITAMINS
  2. SEROQUEL [Concomitant]
     Active Substance: QUETIAPINE FUMARATE
  3. VITAMIN B12 [Concomitant]
     Active Substance: CYANOCOBALAMIN
  4. VITAMIN D3 [Concomitant]
     Active Substance: CHOLECALCIFEROL
  5. NUPLAZID [Suspect]
     Active Substance: PIMAVANSERIN TARTRATE
     Indication: PARKINSON^S DISEASE
     Dosage: 34 MILLIGRAM, QD
     Route: 048
     Dates: start: 20200707
  6. MIRTAZAPINE. [Concomitant]
     Active Substance: MIRTAZAPINE
  7. COENZYME Q10 [Concomitant]
     Active Substance: DIETARY SUPPLEMENT\UBIDECARENONE
  8. LEVOTHYROXINE. [Concomitant]
     Active Substance: LEVOTHYROXINE
  9. FISH OIL [Concomitant]
     Active Substance: FISH OIL
  10. MAGNESIUM [Concomitant]
     Active Substance: MAGNESIUM
  11. FOLIC ACID. [Concomitant]
     Active Substance: FOLIC ACID
  12. GLUCOSAMINE [Concomitant]
     Active Substance: GLUCOSAMINE

REACTIONS (1)
  - Peripheral swelling [Not Recovered/Not Resolved]

NARRATIVE: CASE EVENT DATE: 2021
